FAERS Safety Report 23847503 (Version 1)
Quarter: 2024Q2

REPORT INFORMATION
  Report Type: Spontaneous
  Country: NL (occurrence: NL)
  Receive Date: 20240513
  Receipt Date: 20240513
  Transmission Date: 20240716
  Serious: Yes (Other)
  Sender: FDA-Public Use
  Company Number: None

PATIENT

DRUGS (4)
  1. FLUTICASONE PROPIONATE [Suspect]
     Active Substance: FLUTICASONE PROPIONATE
     Indication: Sinusitis
     Dosage: 100 ?G, BID (50MCG/DOSE 2D2)
     Route: 065
     Dates: start: 20240404
  2. ASPIRIN [Concomitant]
     Active Substance: ASPIRIN
     Indication: Product used for unknown indication
     Dosage: UNK (TABLET, 80 MG (MILLIGRAM))
     Route: 065
  3. CALCIUM ACETATE;MAGNESIUM CARBONATE [Concomitant]
     Indication: Product used for unknown indication
     Dosage: UNK (TABLET, 435/235 MG (MILLIGRAM))
     Route: 065
  4. FESOTERODINE [Concomitant]
     Active Substance: FESOTERODINE
     Indication: Product used for unknown indication
     Dosage: UNK (MODIFIED-RELEASE TABLET, 8 MG (MILLIGRAM))
     Route: 065

REACTIONS (1)
  - Hallucination, auditory [Recovered/Resolved]
